FAERS Safety Report 5076935-6 (Version None)
Quarter: 2006Q3

REPORT INFORMATION
  Report Type: 
  Country: None (occurrence: None)
  Receive Date: 20060810
  Receipt Date: 20060607
  Transmission Date: 20061208
  Serious: No
  Sender: FDA-Public Use
  Company Number: US-GLAXOSMITHKLINE-A0608237A

PATIENT
  Age: 67 Year
  Sex: Female

DRUGS (3)
  1. PAXIL [Suspect]
     Indication: MIGRAINE PROPHYLAXIS
     Dosage: 2.5MG PER DAY
     Route: 048
     Dates: start: 20030301
  2. ESTRADIOL INJ [Concomitant]
  3. IMITREX [Concomitant]

REACTIONS (6)
  - COGNITIVE DISORDER [None]
  - DRUG INEFFECTIVE [None]
  - FALL [None]
  - SEDATION [None]
  - SOMNOLENCE [None]
  - THERAPEUTIC RESPONSE UNEXPECTED [None]
